FAERS Safety Report 4979432-9 (Version None)
Quarter: 2006Q2

REPORT INFORMATION
  Report Type: 
  Country: None (occurrence: None)
  Receive Date: 20060412
  Receipt Date: 20060412
  Transmission Date: 20061013
  Serious: Yes (Congenital Anomaly, Other)
  Sender: FDA-Public Use
  Company Number: None

PATIENT
  Age: 17 Year
  Sex: Female
  Weight: 56.6996 kg

DRUGS (1)
  1. ACCUTANE [Suspect]
     Indication: ACNE
     Dosage: UNSURE - HAVE BOTTLE DAILY PO
     Route: 048
     Dates: start: 20050801, end: 20060110

REACTIONS (1)
  - PREGNANCY WITH CONTRACEPTIVE DEVICE [None]
